FAERS Safety Report 6946417-2 (Version None)
Quarter: 2010Q3

REPORT INFORMATION
  Report Type: 
  Country: None (occurrence: None)
  Receive Date: 20100827
  Receipt Date: 20100817
  Transmission Date: 20110219
  Serious: Yes (Death, Hospitalization)
  Sender: FDA-Public Use
  Company Number: CO-GENENTECH-302265

PATIENT
  Sex: Female
  Weight: 79 kg

DRUGS (20)
  1. RITUXIMAB [Suspect]
     Indication: DIFFUSE LARGE B-CELL LYMPHOMA
     Dosage: 700 MG, QD
     Route: 065
     Dates: start: 20100420
  2. RITUXIMAB [Suspect]
     Dosage: UNK
     Route: 065
     Dates: start: 20100805
  3. BLINDED BEVACIZUMAB [Suspect]
     Dosage: 21 UNK, Q21D
     Route: 042
     Dates: start: 20100420, end: 20100512
  4. CYCLOPHOSPHAMIDE [Suspect]
     Dosage: 21 UNK, Q21D
     Route: 042
     Dates: start: 20100420, end: 20100512
  5. DOXORUBICIN HCL [Suspect]
     Dosage: 21 UNK, Q21D
     Route: 042
     Dates: start: 20100420, end: 20100512
  6. BLINDED PLACEBO [Suspect]
     Dosage: 21 UNK, Q21D
     Route: 042
     Dates: start: 20100420, end: 20100512
  7. BLINDED PREDNISONE [Suspect]
     Dosage: 21 UNK, Q21D
     Route: 042
     Dates: start: 20100420, end: 20100512
  8. BLINDED RITUXIMAB [Suspect]
     Dosage: 21 UNK, Q21D
     Route: 042
     Dates: start: 20100420, end: 20100512
  9. VINCRISTINE [Suspect]
     Dosage: 21 UNK, Q21D
     Route: 042
     Dates: start: 20100420, end: 20100512
  10. CYCLOPHOSPHAMIDE [Suspect]
     Indication: DIFFUSE LARGE B-CELL LYMPHOMA
     Dosage: 1400 MG, UNK
     Route: 065
     Dates: start: 20100420
  11. CYCLOPHOSPHAMIDE [Suspect]
     Dosage: UNK
     Route: 065
     Dates: start: 20100805
  12. DOXORUBICIN HCL [Suspect]
     Indication: DIFFUSE LARGE B-CELL LYMPHOMA
     Dosage: 93 MG, QD
     Route: 065
     Dates: start: 20100421
  13. DOXORUBICIN HCL [Suspect]
     Dosage: UNK
     Route: 065
     Dates: start: 20100805
  14. VINCRISTINE [Suspect]
     Indication: DIFFUSE LARGE B-CELL LYMPHOMA
     Dosage: 2 MG, QD
     Route: 065
     Dates: start: 20100421
  15. VINCRISTINE [Suspect]
     Dosage: UNK
     Route: 065
     Dates: start: 20100805
  16. PREDNISONE [Suspect]
     Indication: DIFFUSE LARGE B-CELL LYMPHOMA
     Dosage: 100 MG, QD
     Route: 065
     Dates: start: 20100421
  17. PREDNISONE [Suspect]
     Dosage: UNK
     Route: 065
     Dates: start: 20100805
  18. PEGFILGRASTIM [Concomitant]
     Indication: PRODUCT USED FOR UNKNOWN INDICATION
     Dosage: UNK
     Dates: start: 20100422, end: 20100805
  19. CLEMASTIN [Concomitant]
     Indication: PRODUCT USED FOR UNKNOWN INDICATION
     Dosage: UNK
     Dates: start: 20100420, end: 20100805
  20. ACETAMINOPHEN [Concomitant]
     Indication: PRODUCT USED FOR UNKNOWN INDICATION
     Dosage: UNK
     Dates: start: 20100420, end: 20100805

REACTIONS (2)
  - FEBRILE NEUTROPENIA [None]
  - URINARY TRACT INFECTION [None]
